FAERS Safety Report 19641523 (Version 1)
Quarter: 2021Q3

REPORT INFORMATION
  Report Type: Report from Study
  Country: US (occurrence: US)
  Receive Date: 20210730
  Receipt Date: 20210730
  Transmission Date: 20211014
  Serious: Yes (Hospitalization)
  Sender: FDA-Public Use
  Company Number: US-SUNOVION-2016SUN003649

PATIENT
  Sex: Female

DRUGS (1)
  1. LATUDA [Suspect]
     Active Substance: LURASIDONE HYDROCHLORIDE
     Dosage: 20 MG
     Route: 048

REACTIONS (8)
  - Retching [Unknown]
  - Mouth swelling [Unknown]
  - Swollen tongue [Unknown]
  - Pollakiuria [Unknown]
  - Arthritis [Unknown]
  - Nausea [Unknown]
  - Colitis [Unknown]
  - Swelling [Unknown]
